FAERS Safety Report 5692906-0 (Version None)
Quarter: 2008Q2

REPORT INFORMATION
  Report Type: 
  Country: None (occurrence: None)
  Receive Date: 20080327
  Receipt Date: 20080110
  Transmission Date: 20081010
  Serious: Yes (Other)
  Sender: FDA-Public Use
  Company Number: A03200800188

PATIENT
  Age: 54 Year
  Sex: Female

DRUGS (3)
  1. AMBIEN CR [Suspect]
     Indication: SLEEP DISORDER
     Dosage: 6.25 MG QD - ORAL
     Route: 048
     Dates: start: 20080107
  2. ESCITALOPRAM OXALATE [Concomitant]
  3. ALENDRONATE SODIUM [Concomitant]

REACTIONS (4)
  - HYPERSENSITIVITY [None]
  - LIP SWELLING [None]
  - PRURITUS [None]
  - URTICARIA [None]
